FAERS Safety Report 9122149 (Version 1)
Quarter: 2013Q1

REPORT INFORMATION
  Report Type: Spontaneous
  Country: BE (occurrence: BE)
  Receive Date: 20130114
  Receipt Date: 20130114
  Transmission Date: 20140127
  Serious: Yes (Other)
  Sender: FDA-Public Use
  Company Number: PHHY2013BE002038

PATIENT
  Age: 54 Year
  Sex: Female

DRUGS (2)
  1. ACLASTA [Suspect]
     Indication: OSTEOPOROSIS
     Dosage: 5 MG, UNK
     Route: 042
     Dates: start: 200910
  2. ACLASTA [Suspect]
     Dosage: 5 UNK, UNK
     Route: 042
     Dates: start: 201012

REACTIONS (5)
  - Osteonecrosis [Unknown]
  - Bone disorder [Unknown]
  - Bone marrow oedema [Unknown]
  - Bone density increased [Unknown]
  - Arthralgia [Unknown]
